FAERS Safety Report 23718083 (Version 1)
Quarter: 2024Q2

REPORT INFORMATION
  Report Type: Spontaneous
  Country: TW (occurrence: TW)
  Receive Date: 20240408
  Receipt Date: 20240408
  Transmission Date: 20240716
  Serious: Yes (Death, Life-Threatening, Other)
  Sender: FDA-Public Use
  Company Number: TW-MYLANLABS-2024M1030857

PATIENT
  Age: 55 Year
  Sex: Male
  Weight: 54.7 kg

DRUGS (14)
  1. LIPITOR [Suspect]
     Active Substance: ATORVASTATIN CALCIUM
     Indication: Product used for unknown indication
     Dosage: UNK
     Route: 048
  2. TYGACIL [Suspect]
     Active Substance: TIGECYCLINE
     Indication: Soft tissue infection
     Dosage: BID (Q12H)
     Route: 042
     Dates: start: 20240207, end: 20240213
  3. AVELOX ABC PACK [Concomitant]
     Active Substance: MOXIFLOXACIN HYDROCHLORIDE
     Dosage: UNK
     Route: 042
  4. ASPIRIN [Concomitant]
     Active Substance: ASPIRIN
     Dosage: UNK
     Route: 048
  5. LACTULOSE [Concomitant]
     Active Substance: LACTULOSE
     Dosage: UNK
     Route: 048
  6. METFORMIN HYDROCHLORIDE [Concomitant]
     Active Substance: METFORMIN HYDROCHLORIDE
     Dosage: UNK
     Route: 048
  7. Imperan [Concomitant]
     Dosage: UNK
     Route: 065
  8. MORPHINE HYDROCHLORIDE [Concomitant]
     Active Substance: MORPHINE HYDROCHLORIDE
     Dosage: UNK
     Route: 058
  9. PANTOPRAZOLE SODIUM [Concomitant]
     Active Substance: PANTOPRAZOLE SODIUM
     Dosage: UNK
     Route: 042
  10. SILODOSIN [Concomitant]
     Active Substance: SILODOSIN
     Dosage: UNK
     Route: 048
  11. BRILINTA [Concomitant]
     Active Substance: TICAGRELOR
     Dosage: UNK
     Route: 048
  12. TRACETON [Concomitant]
     Dosage: UNK
     Route: 048
  13. LINAGLIPTIN [Concomitant]
     Active Substance: LINAGLIPTIN
     Dosage: UNK
     Route: 048
  14. BISOPROLOL FUMARATE [Concomitant]
     Active Substance: BISOPROLOL FUMARATE
     Dosage: UNK
     Route: 048

REACTIONS (13)
  - Hyperbilirubinaemia [Fatal]
  - Acute hepatic failure [Unknown]
  - Haemolysis [Unknown]
  - Sepsis [Unknown]
  - Drug-induced liver injury [Unknown]
  - Gangrene [Unknown]
  - Disseminated intravascular coagulation [Unknown]
  - Jaundice [Unknown]
  - Hypoglycaemia [Unknown]
  - Hepatic enzyme increased [Unknown]
  - Ischaemic skin ulcer [Unknown]
  - Infection [Unknown]
  - Arteriosclerosis [Unknown]

NARRATIVE: CASE EVENT DATE: 20240213
